FAERS Safety Report 17259157 (Version 1)
Quarter: 2020Q1

REPORT INFORMATION
  Report Type: Spontaneous
  Country: PT (occurrence: PT)
  Receive Date: 20200110
  Receipt Date: 20200110
  Transmission Date: 20200409
  Serious: Yes (Life-Threatening, Hospitalization, Other)
  Sender: FDA-Public Use
  Company Number: PT-MYLANLABS-2020M1003213

PATIENT
  Age: 48 Year
  Sex: Female
  Weight: 77 kg

DRUGS (12)
  1. BUPROPION. [Suspect]
     Active Substance: BUPROPION
     Indication: WEIGHT DECREASED
     Dosage: 200 MILLIGRAM, QD
     Route: 048
     Dates: start: 201708, end: 201804
  2. CASCARA [Suspect]
     Active Substance: RHAMNUS PURSHIANA BARK EXTRACT
     Indication: WEIGHT DECREASED
     Dosage: 200 MILLIGRAM, QD
     Route: 065
     Dates: start: 201708, end: 201804
  3. PHENOLPHTHALEIN [Suspect]
     Active Substance: PHENOLPHTHALEIN
     Indication: WEIGHT DECREASED
     Dosage: 2 DOSAGE FORM, QD (200 MCG)
     Route: 048
     Dates: start: 201708, end: 201804
  4. METFORMIN [Suspect]
     Active Substance: METFORMIN HYDROCHLORIDE
     Indication: WEIGHT DECREASED
     Dosage: 400 MILLIGRAM, QD
     Route: 048
     Dates: start: 201708, end: 201804
  5. TOPIRAMATE. [Suspect]
     Active Substance: TOPIRAMATE
     Indication: WEIGHT DECREASED
     Dosage: 20 MILLIGRAM, QD
     Route: 048
     Dates: start: 201708, end: 201804
  6. CENTELLA ASIATICA [Suspect]
     Active Substance: CENTELLA ASIATICA WHOLE
     Indication: WEIGHT DECREASED
     Dosage: 400 MILLIGRAM, QD
     Route: 048
  7. SENNA [Suspect]
     Active Substance: SENNA LEAF\SENNOSIDES\SENNOSIDES A AND B
     Indication: PRODUCT USED FOR UNKNOWN INDICATION
     Dosage: 20 MILLIGRAM
     Route: 065
  8. FUROSEMIDE. [Suspect]
     Active Substance: FUROSEMIDE
     Indication: WEIGHT DECREASED
     Dosage: 80 MILLIGRAM, QD
     Route: 065
  9. CHLORDIAZEPOXIDE. [Suspect]
     Active Substance: CHLORDIAZEPOXIDE
     Indication: WEIGHT DECREASED
     Dosage: 10 MILLIGRAM
     Route: 048
     Dates: start: 201708, end: 201804
  10. CHROMIUM PICOLINATE [Suspect]
     Active Substance: CHROMIUM PICOLINATE
     Indication: WEIGHT DECREASED
     Dosage: 2 DOSAGE FORM, QD (200 MCG)
     Route: 048
     Dates: start: 201708, end: 201804
  11. FLECAINIDE [Concomitant]
     Active Substance: FLECAINIDE
     Indication: VENTRICULAR EXTRASYSTOLES
     Dosage: 100 MILLIGRAM
     Route: 048
     Dates: start: 201605
  12. XENICAL [Suspect]
     Active Substance: ORLISTAT
     Indication: WEIGHT DECREASED
     Dosage: 100 MILLIGRAM, QD
     Route: 048

REACTIONS (5)
  - Fatigue [Recovering/Resolving]
  - Cerebral venous thrombosis [Recovering/Resolving]
  - Psychomotor retardation [Recovering/Resolving]
  - Thalamic infarction [Not Recovered/Not Resolved]
  - Headache [Recovering/Resolving]

NARRATIVE: CASE EVENT DATE: 20180404
